FAERS Safety Report 24023450 (Version 3)
Quarter: 2024Q3

REPORT INFORMATION
  Report Type: Report from Study
  Country: DE (occurrence: DE)
  Receive Date: 20240627
  Receipt Date: 20240710
  Transmission Date: 20241016
  Serious: No
  Sender: ROCHE
  Company Number: DE-ROCHE-3569850

PATIENT
  Age: 79 Year
  Sex: Female

DRUGS (1)
  1. FARICIMAB [Suspect]
     Active Substance: FARICIMAB
     Indication: Neovascular age-related macular degeneration
     Dosage: DOSE CONCENTRATION 120 MG/ML?DOSE LAST STUDY DRUG ADMIN PRIOR AE: 6 MG?TOTAL VOLUME PRIOR AE: 0.05 M
     Route: 050
     Dates: start: 20240215

REACTIONS (1)
  - Bronchitis [Recovered/Resolved]

NARRATIVE: CASE EVENT DATE: 20240514
